FAERS Safety Report 7209255-1 (Version None)
Quarter: 2011Q1

REPORT INFORMATION
  Report Type: 
  Country: None (occurrence: None)
  Receive Date: 20110104
  Receipt Date: 20101228
  Transmission Date: 20110831
  Serious: Yes (Other)
  Sender: FDA-Public Use
  Company Number: A0902208A

PATIENT
  Sex: Female
  Weight: 2.4 kg

DRUGS (3)
  1. RETROVIR [Concomitant]
     Indication: HIV INFECTION
     Dosage: 1MGKH PER DAY
     Dates: start: 20101126, end: 20101126
  2. KALETRA [Suspect]
     Indication: HIV INFECTION
     Dates: start: 20100617
  3. COMBIVIR [Suspect]
     Indication: HIV INFECTION
     Dosage: 2TAB PER DAY
     Dates: start: 20100617

REACTIONS (2)
  - DRUG EXPOSURE DURING PREGNANCY [None]
  - POLYDACTYLY [None]
